FAERS Safety Report 18505075 (Version 1)
Quarter: 2020Q4

REPORT INFORMATION
  Report Type: Spontaneous
  Country: IT (occurrence: IT)
  Receive Date: 20201116
  Receipt Date: 20201116
  Transmission Date: 20210114
  Serious: Yes (Other)
  Sender: FDA-Public Use
  Company Number: IT-AUROBINDO-AUR-APL-2017-44510

PATIENT
  Age: 78 Year
  Sex: Female

DRUGS (1)
  1. SEVELAMER [Suspect]
     Active Substance: SEVELAMER
     Indication: END STAGE RENAL DISEASE
     Dosage: 3.2 GRAM, ONCE A DAY (ADMINISTERED FOR 22 MONTHS)
     Route: 065

REACTIONS (2)
  - Colitis [Unknown]
  - Crystal deposit intestine [Unknown]
